FAERS Safety Report 18496957 (Version 4)
Quarter: 2021Q1

REPORT INFORMATION
  Report Type: Report from Study
  Country: US (occurrence: US)
  Receive Date: 20201112
  Receipt Date: 20210210
  Transmission Date: 20210419
  Serious: No
  Sender: FDA-Public Use
  Company Number: NVSC2020US302727

PATIENT
  Sex: Female

DRUGS (1)
  1. COSENTYX [Suspect]
     Active Substance: SECUKINUMAB
     Indication: PSORIATIC ARTHROPATHY
     Dosage: 300 MG, QW (ONCE A WEEK FOR 5 WEEKS AND THEN Q 4 WEEKS)
     Route: 058

REACTIONS (2)
  - Swelling [Not Recovered/Not Resolved]
  - Limb discomfort [Unknown]
